FAERS Safety Report 9393108 (Version 1)
Quarter: 2013Q3

REPORT INFORMATION
  Report Type: Report from Study
  Country: CA (occurrence: CA)
  Receive Date: 20130710
  Receipt Date: 20130710
  Transmission Date: 20140515
  Serious: Yes (Death)
  Sender: FDA-Public Use
  Company Number: CA-SANOFI-AVENTIS-2013SA069429

PATIENT
  Sex: 0

DRUGS (5)
  1. FLUOROURACIL [Suspect]
     Indication: BREAST CANCER
     Route: 065
  2. EPIRUBICIN [Suspect]
     Indication: BREAST CANCER
     Route: 065
  3. CYCLOPHOSPHAMIDE [Suspect]
     Indication: BREAST CANCER
     Route: 065
  4. DOCETAXEL [Suspect]
     Indication: BREAST CANCER
     Route: 065
  5. THERAPEUTIC RADIOPHARMACEUTICALS [Suspect]
     Indication: BREAST CANCER
     Dosage: 45 GY WITH 16 GY BOOST IN 25 AND 5 FRACTIONS
     Route: 065

REACTIONS (1)
  - Death [Fatal]
